FAERS Safety Report 20735712 (Version 3)
Quarter: 2022Q2

REPORT INFORMATION
  Report Type: Report from Study
  Country: US (occurrence: US)
  Receive Date: 20220421
  Receipt Date: 20220611
  Transmission Date: 20220721
  Serious: Yes (Hospitalization, Other)
  Sender: FDA-Public Use
  Company Number: US-ABBVIE-22K-163-4360702-00

PATIENT
  Age: 67 Year
  Sex: Female
  Weight: 77.180 kg

DRUGS (3)
  1. SKYRIZI [Suspect]
     Active Substance: RISANKIZUMAB-RZAA
     Indication: Psoriasis
     Route: 058
  2. SKYRIZI [Suspect]
     Active Substance: RISANKIZUMAB-RZAA
     Indication: Psoriatic arthropathy
     Route: 058
  3. PFIZER-BIONTECH COVID-19 VACCINE [Concomitant]
     Active Substance: TOZINAMERAN
     Indication: COVID-19 immunisation
     Route: 030

REACTIONS (9)
  - Procedural intestinal perforation [Not Recovered/Not Resolved]
  - Duodenal perforation [Unknown]
  - Pneumoperitoneum [Recovered/Resolved]
  - Weight increased [Recovered/Resolved]
  - Full blood count abnormal [Recovered/Resolved]
  - Full blood count abnormal [Recovered/Resolved]
  - Renal impairment [Recovered/Resolved]
  - Sepsis [Recovered/Resolved]
  - International normalised ratio increased [Recovering/Resolving]

NARRATIVE: CASE EVENT DATE: 20220401
